FAERS Safety Report 24543129 (Version 1)
Quarter: 2024Q4

REPORT INFORMATION
  Report Type: Spontaneous
  Country: GB (occurrence: GB)
  Receive Date: 20241024
  Receipt Date: 20241024
  Transmission Date: 20250115
  Serious: Yes (Other)
  Sender: SANDOZ
  Company Number: None

PATIENT
  Sex: Female

DRUGS (1)
  1. ESTRADIOL [Suspect]
     Active Substance: ESTRADIOL
     Indication: Product used for unknown indication
     Dosage: EXPIRY 2025-09SN 10464030675964
     Route: 062

REACTIONS (7)
  - Menopausal symptoms [Unknown]
  - Night sweats [Unknown]
  - Anxiety [Unknown]
  - Hot flush [Unknown]
  - Application site irritation [Unknown]
  - Application site erythema [Unknown]
  - Drug ineffective [Unknown]
